FAERS Safety Report 9374660 (Version 1)
Quarter: 2013Q2

REPORT INFORMATION
  Report Type: Spontaneous
  Country: BR (occurrence: BR)
  Receive Date: 20130628
  Receipt Date: 20130628
  Transmission Date: 20140414
  Serious: Yes (Other)
  Sender: FDA-Public Use
  Company Number: BR-PFIZER INC-2013189898

PATIENT
  Age: 77 Year
  Sex: Female
  Weight: 86 kg

DRUGS (6)
  1. XALATAN [Suspect]
     Indication: GLAUCOMA
     Dosage: 1 DROP IN EACH EYE, 2X/DAY
     Route: 047
     Dates: start: 20030625
  2. AAS [Concomitant]
     Indication: BLOOD DISORDER
     Dosage: 1 DF DAILY
     Dates: start: 2007
  3. CAPTOPRIL [Concomitant]
     Indication: HYPERTENSION
     Dosage: 2 DF DAILY
     Dates: start: 2007
  4. COMBIGAN [Concomitant]
     Indication: GLAUCOMA
     Dosage: 1 DROP IN EACH EYE, 2X/DAY
     Dates: start: 2003
  5. LABIRIN [Concomitant]
     Indication: LABYRINTHITIS
     Dosage: 2 DF DAILY
     Dates: start: 2009
  6. INSULIN ANTHINR REGULAR [Concomitant]

REACTIONS (3)
  - Glaucoma [Unknown]
  - Diabetes mellitus [Unknown]
  - Incorrect dose administered [Not Recovered/Not Resolved]
